FAERS Safety Report 4993225-8 (Version None)
Quarter: 2006Q1

REPORT INFORMATION
  Report Type: 
  Country: None (occurrence: None)
  Receive Date: 20060314
  Receipt Date: 20050422
  Transmission Date: 20060701
  Serious: Yes (Other)
  Sender: FDA-Public Use
  Company Number: 200510100BCC

PATIENT
  Age: 64 Year
  Sex: Male
  Weight: 74.8435 kg

DRUGS (7)
  1. ALEVE (CAPLET) [Suspect]
     Indication: MUSCULOSKELETAL CHEST PAIN
     Dosage: 220 MG, QD, ORAL
     Route: 048
     Dates: start: 20041101, end: 20041201
  2. LISINOPRIL [Concomitant]
  3. HYDROCHLOROTHIAZIDE [Concomitant]
  4. NORVASC [Concomitant]
  5. SYNTHROID [Concomitant]
  6. PRAVACHOL [Concomitant]
  7. IBUPROFEN [Concomitant]

REACTIONS (2)
  - ERYTHEMA MULTIFORME [None]
  - HISTAMINE LEVEL INCREASED [None]
